FAERS Safety Report 17179152 (Version 2)
Quarter: 2019Q4

REPORT INFORMATION
  Report Type: Report from Study
  Country: None (occurrence: BR)
  Receive Date: 20191219
  Receipt Date: 20191223
  Transmission Date: 20200122
  Serious: Yes (Other)
  Sender: FDA-Public Use
  Company Number: BR-ABBVIE-19K-020-3196781-00

PATIENT
  Sex: Female
  Weight: 85 kg

DRUGS (1)
  1. HUMIRA [Suspect]
     Active Substance: ADALIMUMAB
     Indication: PSORIATIC ARTHROPATHY
     Route: 058
     Dates: start: 20190621

REACTIONS (10)
  - Depression [Recovered/Resolved]
  - Pain [Recovering/Resolving]
  - Panic disorder [Recovered/Resolved]
  - Blepharitis [Recovering/Resolving]
  - Insomnia [Recovering/Resolving]
  - Cataract [Not Recovered/Not Resolved]
  - Eye pruritus [Unknown]
  - Eyelid margin crusting [Unknown]
  - Product container issue [Unknown]
  - Stress [Unknown]

NARRATIVE: CASE EVENT DATE: 2019
